FAERS Safety Report 7763642 (Version 2)
Quarter: 2015Q4

REPORT INFORMATION
  Report Type: Spontaneous
  Country: US (occurrence: US)
  Receive Date: 20110118
  Receipt Date: 20151218
  Transmission Date: 20160305
  Serious: Yes (Hospitalization, Other)
  Sender: FDA-Public Use
  Company Number: US-ROCHE-730946

PATIENT
  Age: 38 Year
  Sex: Female
  Weight: 63.5 kg

DRUGS (1)
  1. ACCUTANE [Suspect]
     Active Substance: ISOTRETINOIN
     Indication: ACNE
     Route: 065
     Dates: start: 199904, end: 200001

REACTIONS (9)
  - Depression [Unknown]
  - Osteoarthritis [Unknown]
  - Haemorrhoids [Unknown]
  - Gastrointestinal injury [Unknown]
  - Diverticulitis [Unknown]
  - Anaemia [Unknown]
  - Inflammatory bowel disease [Unknown]
  - Crohn^s disease [Unknown]
  - Colitis ulcerative [Unknown]

NARRATIVE: CASE EVENT DATE: 20010924
